FAERS Safety Report 7105928-X (Version None)
Quarter: 2010Q4

REPORT INFORMATION
  Report Type: 
  Country: None (occurrence: None)
  Receive Date: 20101110
  Receipt Date: 20101026
  Transmission Date: 20110411
  Serious: Yes (Death, Other)
  Sender: FDA-Public Use
  Company Number: 011636

PATIENT
  Age: 43 Year
  Sex: 0

DRUGS (4)
  1. BUSULFEX [Suspect]
     Indication: STEM CELL TRANSPLANT
     Dosage: , INTRAVENOUS
     Route: 042
  2. CYCLOPHOSPHAMIDE [Concomitant]
  3. METHOTREXATE [Concomitant]
  4. CYCLOSPORINE [Concomitant]

REACTIONS (4)
  - ACUTE GRAFT VERSUS HOST DISEASE [None]
  - ACUTE RESPIRATORY DISTRESS SYNDROME [None]
  - CYTOMEGALOVIRUS INFECTION [None]
  - LUNG INFILTRATION [None]
